FAERS Safety Report 5524571-7 (Version None)
Quarter: 2007Q4

REPORT INFORMATION
  Report Type: 
  Country: None (occurrence: None)
  Receive Date: 20071123
  Receipt Date: 20071113
  Transmission Date: 20080405
  Serious: Yes (Other)
  Sender: FDA-Public Use
  Company Number: JP-JNJFOC-20071106521

PATIENT
  Age: 76 Year
  Sex: Female

DRUGS (7)
  1. ITRIZOLE [Suspect]
     Route: 041
  2. ITRIZOLE [Suspect]
     Indication: DRUG USE FOR UNKNOWN INDICATION
     Route: 041
  3. NU-LOTAN [Concomitant]
     Route: 048
  4. RIZE [Concomitant]
     Route: 048
  5. VITANEURIN [Concomitant]
     Route: 048
  6. SELBEX [Concomitant]
     Route: 048
  7. BONALON [Concomitant]
     Route: 048

REACTIONS (3)
  - CARDIAC FAILURE [None]
  - ELECTROCARDIOGRAM PQ INTERVAL PROLONGED [None]
  - PLATELET COUNT DECREASED [None]
